FAERS Safety Report 24365396 (Version 1)
Quarter: 2024Q3

REPORT INFORMATION
  Report Type: Spontaneous
  Country: CA (occurrence: CA)
  Receive Date: 20240926
  Receipt Date: 20240926
  Transmission Date: 20241017
  Serious: Yes (Other)
  Sender: CELLTRION
  Company Number: CA-PFIZER INC-202400254310

PATIENT

DRUGS (2)
  1. INFLECTRA [Suspect]
     Active Substance: INFLIXIMAB-DYYB
     Indication: Crohn^s disease
     Dosage: 10 MG/KG, EVERY 8 WEEKS
     Route: 042
     Dates: start: 20240715
  2. INFLECTRA [Suspect]
     Active Substance: INFLIXIMAB-DYYB
     Dosage: 870 MG, EVERY 8 WEEKS
     Route: 042
     Dates: start: 20240909

REACTIONS (6)
  - Neoplasm [Not Recovered/Not Resolved]
  - Anogenital warts [Unknown]
  - Fatigue [Unknown]
  - Urinary incontinence [Unknown]
  - Testicular disorder [Unknown]
  - Libido decreased [Unknown]

NARRATIVE: CASE EVENT DATE: 20240101
